FAERS Safety Report 21687410 (Version 1)
Quarter: 2022Q4

REPORT INFORMATION
  Report Type: Spontaneous
  Country: US (occurrence: None)
  Receive Date: 20221205
  Receipt Date: 20221205
  Transmission Date: 20230112
  Serious: No
  Sender: FDA-Public Use
  Company Number: None

PATIENT
  Sex: Female

DRUGS (1)
  1. MAKENA [Suspect]
     Active Substance: HYDROXYPROGESTERONE CAPROATE
     Indication: Prenatal care
     Dosage: 275MG WEEKLY SUBCUTANEOUSLY?
     Route: 058
     Dates: start: 20221106

REACTIONS (4)
  - Varicose veins vulval [None]
  - Pain [None]
  - Anxiety [None]
  - Exposure during pregnancy [None]
